FAERS Safety Report 5750499-3 (Version None)
Quarter: 2008Q2

REPORT INFORMATION
  Report Type: 
  Country: None (occurrence: None)
  Receive Date: 20080523
  Receipt Date: 20080523
  Transmission Date: 20081010
  Serious: Yes (Life-Threatening, Hospitalization, Disabling)
  Sender: FDA-Public Use
  Company Number: None

PATIENT
  Age: 57 Year
  Sex: Male
  Weight: 147.419 kg

DRUGS (1)
  1. DIGOXIN [Suspect]
     Indication: ATRIAL FLUTTER
     Dosage: 5MG 2 X A DAY ORALLY
     Route: 048
     Dates: start: 20071120, end: 20071227

REACTIONS (9)
  - ARRHYTHMIA [None]
  - CARDIAC DISORDER [None]
  - CHOKING [None]
  - FATIGUE [None]
  - GASTRIC DISORDER [None]
  - HEART RATE DECREASED [None]
  - NAUSEA [None]
  - ORAL INTAKE REDUCED [None]
  - SLEEP DISORDER [None]
